FAERS Safety Report 20523214 (Version 1)
Quarter: 2022Q1

REPORT INFORMATION
  Report Type: Spontaneous
  Country: CN (occurrence: CN)
  Receive Date: 20220227
  Receipt Date: 20220227
  Transmission Date: 20220424
  Serious: Yes (Hospitalization, Other)
  Sender: FDA-Public Use
  Company Number: CN-BAXTER-2022BAX003962

PATIENT
  Age: 52 Year
  Sex: Female
  Weight: 61 kg

DRUGS (9)
  1. CYCLOPHOSPHAMIDE [Suspect]
     Active Substance: CYCLOPHOSPHAMIDE
     Indication: Breast cancer female
     Dosage: PRIOR REGIMEN; CYCLOPHOSPHAMIDE FOR INJECTION + 0.9% SODIUM CHLORIDE INJECTION
     Route: 041
  2. CYCLOPHOSPHAMIDE [Suspect]
     Active Substance: CYCLOPHOSPHAMIDE
     Dosage: CYCLOPHOSPHAMIDE FOR INJECTION 900 MG, D1 + 0.9% SODIUM CHLORIDE INJECTION 100ML
     Route: 041
     Dates: start: 20220207, end: 20220207
  3. SODIUM CHLORIDE [Suspect]
     Active Substance: SODIUM CHLORIDE
     Indication: Medication dilution
     Dosage: PRIOR REGIMEN; 0.9% SODIUM CHLORIDE INJECTION + CYCLOPHOSPHAMIDE FOR INJECTION
     Route: 041
  4. SODIUM CHLORIDE [Suspect]
     Active Substance: SODIUM CHLORIDE
     Dosage: 0.9% SODIUM CHLORIDE INJECTION 100ML + CYCLOPHOSPHAMIDE FOR INJECTION 900 MG
     Route: 041
     Dates: start: 20220207, end: 20220207
  5. DEXTROSE [Suspect]
     Active Substance: DEXTROSE
     Indication: Medication dilution
     Dosage: PRIOR REGIMEN; 5% GLUCOSE INJECTION + PIRARUBICIN HYDROCHLORIDE FOR INJECTION
     Route: 041
  6. DEXTROSE [Suspect]
     Active Substance: DEXTROSE
     Dosage: 5% GLUCOSE INJECTION 100 ML + PIRARUBICIN HYDROCHLORIDE FOR INJECTION 90 MG
     Route: 041
     Dates: start: 20220207, end: 20220207
  7. PIRARUBICIN HYDROCHLORIDE [Suspect]
     Active Substance: PIRARUBICIN HYDROCHLORIDE
     Indication: Breast cancer female
     Dosage: PRIOR REGIMEN; PIRARUBICIN HYDROCHLORIDE FOR INJECTION + 5% GLUCOSE INJECTION
     Route: 041
  8. PIRARUBICIN HYDROCHLORIDE [Suspect]
     Active Substance: PIRARUBICIN HYDROCHLORIDE
     Dosage: PIRARUBICIN HYDROCHLORIDE FOR INJECTION 90 MG + 5% GLUCOSE INJECTION 100 ML
     Route: 041
     Dates: start: 20220207, end: 20220207
  9. GRANULOCYTE COLONY-STIMULATING FACTOR NOS [Concomitant]
     Active Substance: GRANULOCYTE COLONY-STIMULATING FACTOR NOS
     Indication: Prophylaxis
     Route: 058
     Dates: start: 202202

REACTIONS (2)
  - Myelosuppression [Unknown]
  - Granulocytopenia [Recovered/Resolved]

NARRATIVE: CASE EVENT DATE: 20220217
